FAERS Safety Report 5945794-9 (Version None)
Quarter: 2008Q4

REPORT INFORMATION
  Report Type: 
  Country: None (occurrence: None)
  Receive Date: 20081106
  Receipt Date: 20081014
  Transmission Date: 20090506
  Serious: Yes (Hospitalization)
  Sender: FDA-Public Use
  Company Number: 2008AL011153

PATIENT
  Sex: Male

DRUGS (1)
  1. DIGOXIN [Suspect]
     Indication: PALPITATIONS
     Dosage: 0.25MG, DAILY, PO
     Route: 048

REACTIONS (5)
  - ASTHENIA [None]
  - COMA [None]
  - DIZZINESS [None]
  - RENAL FAILURE [None]
  - WEIGHT DECREASED [None]
